FAERS Safety Report 6754128-1 (Version None)
Quarter: 2010Q2

REPORT INFORMATION
  Report Type: 
  Country: None (occurrence: None)
  Receive Date: 20100601
  Receipt Date: 20100524
  Transmission Date: 20101027
  Serious: Yes (Other)
  Sender: FDA-Public Use
  Company Number: 1000014017

PATIENT
  Sex: Female
  Weight: 80 kg

DRUGS (1)
  1. CARBAMAZEPINE [Suspect]
     Dosage: 800 MG (400 MG,2 IN 1 D)

REACTIONS (4)
  - DEPRESSIVE SYMPTOM [None]
  - DISEASE PROGRESSION [None]
  - MANIA [None]
  - PSORIASIS [None]
